FAERS Safety Report 13365580 (Version 1)
Quarter: 2017Q1

REPORT INFORMATION
  Report Type: Spontaneous
  Country: US (occurrence: US)
  Receive Date: 20170323
  Receipt Date: 20170323
  Transmission Date: 20170429
  Serious: No
  Sender: FDA-Public Use
  Company Number: US-WARNER CHILCOTT-2016-001129

PATIENT
  Age: 60 Year
  Sex: Female

DRUGS (3)
  1. ANTIHYPERTENSIVES [Concomitant]
     Active Substance: UNSPECIFIED INGREDIENT
     Indication: HYPERTENSION
     Dosage: UNK, UNKNOWN
     Route: 065
  2. ESTRACE [Suspect]
     Active Substance: ESTRADIOL
     Indication: OESTROGEN REPLACEMENT THERAPY
     Dosage: 1 GRAM DAILY FOR 5 DAYS
     Route: 067
     Dates: start: 20160525, end: 20160531
  3. ARMOUR THYROID [Concomitant]
     Active Substance: THYROID, PORCINE
     Indication: HYPOTHYROIDISM
     Dosage: 120 MG, UNKNOWN
     Route: 048
     Dates: start: 2013

REACTIONS (11)
  - Insomnia [Unknown]
  - Feeling cold [Unknown]
  - Throat irritation [Unknown]
  - Hypotension [Unknown]
  - Muscular weakness [Unknown]
  - Fatigue [Unknown]
  - Restlessness [Unknown]
  - Bone pain [Unknown]
  - Myalgia [Unknown]
  - Neck pain [Unknown]
  - Feeling abnormal [Unknown]

NARRATIVE: CASE EVENT DATE: 20160527
